FAERS Safety Report 9959960 (Version 1)
Quarter: 2014Q1

REPORT INFORMATION
  Report Type: Spontaneous
  Country: CA (occurrence: None)
  Receive Date: 20140227
  Receipt Date: 20140227
  Transmission Date: 20141002
  Serious: Yes (Hospitalization)
  Sender: FDA-Public Use
  Company Number: SYM-2014-17991

PATIENT
  Age: 57 Year
  Sex: Male

DRUGS (6)
  1. BUPROPION [Suspect]
     Indication: DEPRESSION
  2. LINEZOLID [Suspect]
     Indication: GRAFT INFECTION
  3. PROPOFOL (PROPOFOL)(PROPOFOL) [Concomitant]
  4. SUCCINYLCHOLINE (SUXAMETHONIUM CHLORIDE) (SUXAMETHONIUM CHLORIDE) [Concomitant]
  5. ISOFLURANE (ISOFLURANE)(ISOFLURANE) [Concomitant]
  6. FENTANYL (FENTANYL)(FENTANYL) [Concomitant]

REACTIONS (2)
  - Procedural hypertension [None]
  - Drug interaction [None]
